FAERS Safety Report 4757648-4 (Version None)
Quarter: 2005Q3

REPORT INFORMATION
  Report Type: 
  Country: None (occurrence: None)
  Receive Date: 20050831
  Receipt Date: 20050810
  Transmission Date: 20060218
  Serious: Yes (Other)
  Sender: FDA-Public Use
  Company Number: US-GLAXOSMITHKLINE-A0569861A

PATIENT
  Age: 39 Year
  Sex: Female
  Weight: 52.5 kg

DRUGS (4)
  1. LAMICTAL [Suspect]
     Indication: BIPOLAR II DISORDER
     Route: 048
     Dates: start: 20050215, end: 20050413
  2. EFFEXOR XR [Suspect]
     Indication: DRUG USE FOR UNKNOWN INDICATION
     Dosage: 225MG PER DAY
     Route: 048
  3. SEROQUEL [Concomitant]
     Route: 048
     Dates: start: 20020801
  4. KLONOPIN [Concomitant]
     Dosage: 1MG AT NIGHT
     Route: 048
     Dates: start: 20010101

REACTIONS (9)
  - ABNORMAL DREAMS [None]
  - DRUG INTERACTION [None]
  - HALLUCINATION [None]
  - INFECTIOUS MONONUCLEOSIS [None]
  - NIGHT SWEATS [None]
  - PARALYSIS [None]
  - SLEEP DISORDER [None]
  - SLEEP PARALYSIS [None]
  - SLEEP TALKING [None]
